FAERS Safety Report 16472897 (Version 1)
Quarter: 2020Q3

REPORT INFORMATION
  Report Type: Spontaneous
  Country: CA (occurrence: CA)
  Receive Date: 20190625
  Receipt Date: 20190625
  Transmission Date: 20201105
  Serious: Yes (Hospitalization, Other)
  Sender: FDA-Public Use
  Company Number: CA-AUROBINDO-AUR-APL-2019-034871

PATIENT

DRUGS (9)
  1. FERROUS SULFATE. [Suspect]
     Active Substance: FERROUS SULFATE
     Indication: ANAEMIA
     Dosage: 300 MILLIGRAM, 3 EVERY ONCE A DAY
     Route: 065
  2. WELLBUTRIN [Suspect]
     Active Substance: BUPROPION HYDROCHLORIDE
     Indication: DEPRESSION
     Dosage: 150 MILLIGRAM, 2 EVERY ONCE A DAY
     Route: 048
  3. TEMAZEPAM. [Suspect]
     Active Substance: TEMAZEPAM
     Indication: INSOMNIA
     Dosage: 30 MILLIGRAM, ONCE A DAY
     Route: 048
  4. ACETAMINOPHEN;CODEINE PHOSPHATE [Suspect]
     Active Substance: ACETAMINOPHEN\CODEINE PHOSPHATE
     Indication: BACK PAIN
     Dosage: 2.0 DOSAGE FORM, 3 EVERY ONCE A DAY
     Route: 048
  5. GABAPENTIN. [Suspect]
     Active Substance: GABAPENTIN
     Dosage: 600 MILLIGRAM, ONCE A DAY
     Route: 048
  6. CLONAZEPAM. [Suspect]
     Active Substance: CLONAZEPAM
     Indication: DEPRESSION
     Dosage: 0.5 MILLIGRAM, 3 EVERY ONCE A DAY
     Route: 048
  7. ESCITALOPRAM [Suspect]
     Active Substance: ESCITALOPRAM OXALATE
     Indication: DEPRESSION
     Dosage: 20 MILLIGRAM
     Route: 048
  8. GABAPENTIN. [Suspect]
     Active Substance: GABAPENTIN
     Indication: FIBROMYALGIA
     Dosage: 300 MILLIGRAM, ONCE A DAY
     Route: 048
  9. DOMPERIDONE [Suspect]
     Active Substance: DOMPERIDONE
     Indication: IRRITABLE BOWEL SYNDROME
     Dosage: 10 MILLIGRAM, TWO TIMES A DAY
     Route: 048

REACTIONS (4)
  - Mental disorder [Recovering/Resolving]
  - Dysphagia [Recovering/Resolving]
  - Dehydration [Recovering/Resolving]
  - Condition aggravated [Recovering/Resolving]
